FAERS Safety Report 23587417 (Version 1)
Quarter: 2024Q1

REPORT INFORMATION
  Report Type: Spontaneous
  Country: IN (occurrence: IN)
  Receive Date: 20240301
  Receipt Date: 20240301
  Transmission Date: 20240410
  Serious: Yes (Hospitalization, Other)
  Sender: FDA-Public Use
  Company Number: IN-PFIZER INC-PV202400027823

PATIENT
  Age: 14 Year
  Sex: Male

DRUGS (27)
  1. DOXORUBICIN HYDROCHLORIDE [Suspect]
     Active Substance: DOXORUBICIN HYDROCHLORIDE
     Indication: Osteosarcoma
     Dosage: 60 MG
     Dates: start: 20231019, end: 20231020
  2. DOXORUBICIN HYDROCHLORIDE [Suspect]
     Active Substance: DOXORUBICIN HYDROCHLORIDE
     Dosage: 60 MG
     Dates: start: 20231128, end: 20231129
  3. CISPLATIN [Suspect]
     Active Substance: CISPLATIN
     Indication: Osteosarcoma
     Dosage: 70 MG
     Dates: start: 20231019, end: 20231020
  4. CISPLATIN [Suspect]
     Active Substance: CISPLATIN
     Dosage: 60 MG
     Dates: start: 20231021, end: 20231021
  5. CISPLATIN [Suspect]
     Active Substance: CISPLATIN
     Dosage: 70 MG
     Dates: start: 20231127, end: 20231129
  6. CISPLATIN [Suspect]
     Active Substance: CISPLATIN
     Dosage: 60 MG
     Dates: start: 20231130, end: 20231130
  7. METHOTREXATE [Suspect]
     Active Substance: METHOTREXATE
     Indication: Osteosarcoma
     Dosage: 19000 MG OVER 4 HOURS
     Dates: start: 20230125, end: 20230125
  8. METHOTREXATE [Suspect]
     Active Substance: METHOTREXATE
     Dosage: 19000 MG OVER 4 HOURS
     Dates: start: 20231107, end: 20231107
  9. METHOTREXATE [Suspect]
     Active Substance: METHOTREXATE
     Dosage: 19000 MG OVER 4 HOURS
     Dates: start: 20231115, end: 20231115
  10. METHOTREXATE [Suspect]
     Active Substance: METHOTREXATE
     Dosage: 19000 MG OVER 4 HOURS
     Dates: start: 20231220, end: 20231220
  11. METHOTREXATE [Suspect]
     Active Substance: METHOTREXATE
     Dosage: 19000 MG OVER 4 HOURS
     Dates: start: 20231227, end: 20231227
  12. LEUCOVORIN [Suspect]
     Active Substance: LEUCOVORIN\LEUCOVORIN CALCIUM
     Dosage: 6 DOSES GIVEN AT 25MG
  13. LEUCOVORIN [Suspect]
     Active Substance: LEUCOVORIN\LEUCOVORIN CALCIUM
     Dosage: 6 DOSES FROM 24 HOURS POST HDMTX
  14. DUPHALAC [Concomitant]
     Active Substance: LACTULOSE
     Dosage: 10 ML, 1X/DAY (0-0-1 )
  15. CLOGEN [Concomitant]
     Dosage: UNK, 3X/DAY (1-1-1)
  16. APRECAP [Concomitant]
     Dosage: 125/80/80 ONCE A DAY FOR 2 MORE DAYS
  17. GRANULOCYTE COLONY-STIMULATING FACTOR NOS [Concomitant]
     Active Substance: GRANULOCYTE COLONY-STIMULATING FACTOR NOS
     Dosage: UNK, DAILY (1 CC FOR 5 DAYS)
     Route: 058
  18. GRANULOCYTE COLONY-STIMULATING FACTOR NOS [Concomitant]
     Active Substance: GRANULOCYTE COLONY-STIMULATING FACTOR NOS
     Dosage: UNK (0.7 CC OD FOR 5 DAYS )
     Route: 058
     Dates: start: 20231201
  19. LEVOFLOX [LEVOFLOXACIN] [Concomitant]
     Dosage: 500 MG, 1X/DAY (1-0-0 X 3 DAYS)
  20. LEVOFLOX [LEVOFLOXACIN] [Concomitant]
     Dosage: 500 MG, 1X/DAY (1-0-1 X 3 DAYS)
     Route: 048
  21. ONDEM [Concomitant]
     Dosage: 8 MG, 3X/DAY (1-1-1 X 2 DAYS)
  22. MUCAINE [ALUMINIUM HYDROXIDE GEL;MAGNESIUM HYDROXIDE;OXETACAINE] [Concomitant]
     Indication: Oral pain
     Dosage: 10 ML, 3X/DAY (1-1-1 X 3 DAYS)
  23. MUCAINE [ALUMINIUM HYDROXIDE GEL;MAGNESIUM HYDROXIDE;OXETACAINE] [Concomitant]
     Indication: Oropharyngeal pain
     Dosage: 10 ML, AS NEEDED
  24. GLUTAMINE [LEVOGLUTAMIDE] [Concomitant]
     Dosage: UNK, 3X/DAY (1/2-1/2-1/2 FOR 3 DAYS )
  25. ACIVIR [ACICLOVIR] [Concomitant]
     Dosage: 400 MG, 3X/DAY (1-1-1 FOR 3 DAYS)
  26. ZYTEE [BENZALKONIUM CHLORIDE;CHOLINE SALICYLATE] [Concomitant]
     Dosage: UNK, 3X/DAY (1/A 1-1-1 FOR 3 DAYS)
  27. CLOTRIMAZOLE [Concomitant]
     Active Substance: CLOTRIMAZOLE
     Dosage: UNK

REACTIONS (7)
  - Pyrexia [Recovering/Resolving]
  - Cardiotoxicity [Unknown]
  - Anaemia [Unknown]
  - Nausea [Unknown]
  - Vomiting [Unknown]
  - Neoplasm progression [Unknown]
  - Mucosal inflammation [Recovering/Resolving]
